FAERS Safety Report 17335966 (Version 1)
Quarter: 2020Q1

REPORT INFORMATION
  Report Type: Spontaneous
  Country: FR (occurrence: FR)
  Receive Date: 20200128
  Receipt Date: 20200128
  Transmission Date: 20200409
  Serious: Yes (Hospitalization)
  Sender: FDA-Public Use
  Company Number: FR-TEVA-2020-FR-1174147

PATIENT
  Age: 46 Year
  Sex: Female
  Weight: 50 kg

DRUGS (4)
  1. PAROXETINE. [Suspect]
     Active Substance: PAROXETINE
     Indication: DEPRESSION
     Dosage: 40 MG
     Route: 048
     Dates: start: 2016, end: 20191212
  2. DIAZEPAM. [Concomitant]
     Active Substance: DIAZEPAM
  3. STILNOX [Concomitant]
     Active Substance: ZOLPIDEM TARTRATE
  4. THERALENE [Concomitant]
     Active Substance: TRIMEPRAZINE

REACTIONS (1)
  - Interstitial lung disease [Recovering/Resolving]

NARRATIVE: CASE EVENT DATE: 20190207
